FAERS Safety Report 8230947-X (Version None)
Quarter: 2012Q1

REPORT INFORMATION
  Report Type: 
  Country: None (occurrence: None)
  Receive Date: 20120323
  Receipt Date: 20120313
  Transmission Date: 20120608
  Serious: Yes (Other)
  Sender: FDA-Public Use
  Company Number: GB-ELI_LILLY_AND_COMPANY-GB201203003729

PATIENT
  Age: 6 Year
  Sex: Male
  Weight: 26.4 kg

DRUGS (1)
  1. STRATTERA [Suspect]
     Indication: ATTENTION DEFICIT/HYPERACTIVITY DISORDER
     Dosage: 36 MG, UNK
     Route: 048
     Dates: start: 20111201, end: 20120101

REACTIONS (4)
  - ANXIETY [None]
  - LETHARGY [None]
  - DEPRESSED MOOD [None]
  - EATING DISORDER [None]
